FAERS Safety Report 6178340-8 (Version None)
Quarter: 2009Q2

REPORT INFORMATION
  Report Type: 
  Country: None (occurrence: None)
  Receive Date: 20090504
  Receipt Date: 20090423
  Transmission Date: 20091009
  Serious: Yes (Other)
  Sender: FDA-Public Use
  Company Number: ZA-SANOFI-SYNTHELABO-A01200904419

PATIENT
  Sex: Male

DRUGS (3)
  1. EPILIM [Concomitant]
     Dosage: UNK
     Route: 065
  2. EFFEXOR [Concomitant]
     Dosage: UNK
     Route: 048
  3. ZOLPIDEM TARTRATE [Suspect]
     Indication: DRUG USE FOR UNKNOWN INDICATION
     Dosage: UNK
     Route: 048

REACTIONS (1)
  - HOMICIDE [None]
